FAERS Safety Report 18602816 (Version 1)
Quarter: 2020Q4

REPORT INFORMATION
  Report Type: Other
  Country: CA (occurrence: CA)
  Receive Date: 20201211
  Receipt Date: 20201211
  Transmission Date: 20210114
  Serious: Yes (Other)
  Sender: FDA-Public Use
  Company Number: CA-CELLTRION INC.-2020CA033309

PATIENT

DRUGS (18)
  1. AZATHIOPRINE. [Concomitant]
     Active Substance: AZATHIOPRINE
  2. PREDNISONE. [Concomitant]
     Active Substance: PREDNISONE
  3. DIPHENHYDRAMINE HYDROCHLORIDE. [Concomitant]
     Active Substance: DIPHENHYDRAMINE HYDROCHLORIDE
     Indication: PREMEDICATION
     Dosage: 50.0 MG
     Route: 048
  4. HYDROXYCHLOROQUINE [Concomitant]
     Active Substance: HYDROXYCHLOROQUINE
     Dosage: 200.0 MG, 2 EVERY 1 DAYS
     Route: 065
  5. MYFORTIC [Concomitant]
     Active Substance: MYCOPHENOLATE SODIUM
  6. SEPTRA DS [Concomitant]
     Active Substance: SULFAMETHOXAZOLE\TRIMETHOPRIM
     Dosage: 3 EVERY 1 WEEK
  7. SULFATRIM [Concomitant]
     Active Substance: SULFAMETHOXAZOLE\TRIMETHOPRIM
  8. ACETAMINOPHEN. [Concomitant]
     Active Substance: ACETAMINOPHEN
     Indication: PREMEDICATION
     Dosage: 650.0 MG
     Route: 048
  9. ADALAT [Concomitant]
     Active Substance: NIFEDIPINE
  10. RAMIPRIL. [Concomitant]
     Active Substance: RAMIPRIL
  11. TECTA [Concomitant]
     Active Substance: PANTOPRAZOLE MAGNESIUM
  12. RITUXIMAB (UNKNOWN) [Suspect]
     Active Substance: RITUXIMAB
     Indication: ANTINEUTROPHIL CYTOPLASMIC ANTIBODY
     Dosage: 1000.0 MG
     Route: 042
  13. BENADRYL [Concomitant]
     Active Substance: DIPHENHYDRAMINE HYDROCHLORIDE
     Indication: PREMEDICATION
     Dosage: 50.0 MG
     Route: 048
  14. DOMPERIDONE [Concomitant]
     Active Substance: DOMPERIDONE
  15. METHYLPREDNISOLONE. [Concomitant]
     Active Substance: METHYLPREDNISOLONE
     Indication: PREMEDICATION
     Dosage: 100.0 MG
     Route: 042
  16. IRON [Concomitant]
     Active Substance: IRON
  17. SOLU-MEDROL [Concomitant]
     Active Substance: METHYLPREDNISOLONE SODIUM SUCCINATE
     Indication: PREMEDICATION
     Dosage: 100.0 MG
     Route: 042
  18. TYLENOL [Concomitant]
     Active Substance: ACETAMINOPHEN
     Indication: PREMEDICATION
     Dosage: 650.0 MG
     Route: 048

REACTIONS (19)
  - Muscle twitching [Unknown]
  - Pain in extremity [Unknown]
  - Fatigue [Unknown]
  - Morphoea [Unknown]
  - Rales [Unknown]
  - Bone density decreased [Unknown]
  - Nasal crusting [Unknown]
  - Renal impairment [Unknown]
  - Off label use [Unknown]
  - Oxygen saturation decreased [Unknown]
  - Haematuria [Unknown]
  - Weight increased [Unknown]
  - Product use issue [Unknown]
  - Dyspnoea exertional [Unknown]
  - Proteinuria [Unknown]
  - Raynaud^s phenomenon [Unknown]
  - Nasal congestion [Unknown]
  - Muscle spasms [Unknown]
  - Blood creatinine increased [Unknown]
